FAERS Safety Report 6385304-8 (Version None)
Quarter: 2009Q4

REPORT INFORMATION
  Report Type: 
  Country: None (occurrence: None)
  Receive Date: 20091002
  Receipt Date: 20080821
  Transmission Date: 20100525
  Serious: No
  Sender: FDA-Public Use
  Company Number: US-ASTRAZENECA-2008UW17166

PATIENT
  Age: 82 Year
  Sex: Female
  Weight: 72.6 kg

DRUGS (4)
  1. ARIMIDEX [Suspect]
     Indication: BREAST CANCER FEMALE
     Route: 048
     Dates: start: 20080101
  2. ASPIRIN [Concomitant]
     Dosage: 81 MG
  3. AZOR [Concomitant]
     Dosage: 10/40
  4. LEVOXYL [Concomitant]
     Dosage: 0.075

REACTIONS (2)
  - ILL-DEFINED DISORDER [None]
  - MUSCLE SPASMS [None]
